FAERS Safety Report 4901769-X (Version None)
Quarter: 2006Q1

REPORT INFORMATION
  Report Type: 
  Country: None (occurrence: None)
  Receive Date: 20060203
  Receipt Date: 20060203
  Transmission Date: 20060701
  Serious: Yes (Life-Threatening, Hospitalization)
  Sender: FDA-Public Use
  Company Number: None

PATIENT
  Age: 75 Year
  Sex: Female
  Weight: 72 kg

DRUGS (2)
  1. BEVACIZUMAB [Suspect]
     Indication: METASTATIC MALIGNANT MELANOMA
     Dosage: 686 MG  Q2  WEEKS    IV
     Route: 042
     Dates: start: 20050222, end: 20060131
  2. TARCEVA [Suspect]
     Indication: METASTATIC MALIGNANT MELANOMA
     Dosage: 100 MG   DAILY   PO
     Route: 048
     Dates: start: 20050222, end: 20060131

REACTIONS (1)
  - MYOCARDIAL INFARCTION [None]
